FAERS Safety Report 5840337-2 (Version None)
Quarter: 2008Q3

REPORT INFORMATION
  Report Type: 
  Country: None (occurrence: None)
  Receive Date: 20080811
  Receipt Date: 20080729
  Transmission Date: 20090109
  Serious: Yes (Other)
  Sender: FDA-Public Use
  Company Number: FR-MERCK-0808USA00882

PATIENT
  Age: 24 Year
  Sex: Female

DRUGS (4)
  1. ALPHAREDISOL [Suspect]
     Indication: VITAMIN B12 DEFICIENCY
     Route: 030
  2. BETAINE [Concomitant]
     Indication: VITAMIN B12 DEFICIENCY
     Route: 048
  3. LEVOCARNITINE [Concomitant]
     Indication: VITAMIN B12 DEFICIENCY
     Route: 065
  4. FOLINIC ACID [Concomitant]
     Indication: VITAMIN B12 DEFICIENCY
     Route: 065

REACTIONS (3)
  - ABORTION SPONTANEOUS [None]
  - MYELOPATHY [None]
  - THROMBOSIS [None]
